FAERS Safety Report 4620628-3 (Version None)
Quarter: 2005Q1

REPORT INFORMATION
  Report Type: 
  Country: None (occurrence: None)
  Receive Date: 20050324
  Receipt Date: 20050311
  Transmission Date: 20050727
  Serious: Yes (Other)
  Sender: FDA-Public Use
  Company Number: 2005043945

PATIENT
  Sex: 0

DRUGS (4)
  1. EMCYT [Suspect]
     Indication: ILL-DEFINED DISORDER
     Dosage: CYCLIC, ORAL
     Route: 048
  2. PACLITAXEL [Suspect]
     Indication: ILL-DEFINED DISORDER
     Dosage: CYCLIC
  3. ETOPOSIDE [Suspect]
     Indication: ILL-DEFINED DISORDER
     Dosage: CYCLIC
  4. GOSERELIN (GOSERELIN) [Suspect]
     Indication: ILL-DEFINED DISORDER

REACTIONS (6)
  - ACUTE MYELOID LEUKAEMIA [None]
  - DYSPNOEA [None]
  - HAEMOGLOBIN DECREASED [None]
  - MYELODYSPLASTIC SYNDROME [None]
  - NEUTROPENIA [None]
  - WHITE BLOOD CELL COUNT DECREASED [None]
